FAERS Safety Report 5215493-X (Version None)
Quarter: 2007Q2

REPORT INFORMATION
  Report Type: 
  Country: None (occurrence: None)
  Receive Date: 20070123
  Receipt Date: 20070112
  Transmission Date: 20071010
  Serious: Yes (Hospitalization, Disabling)
  Sender: FDA-Public Use
  Company Number: US-JNJFOC-20070103831

PATIENT
  Sex: Female
  Weight: 64.86 kg

DRUGS (2)
  1. ORTHO TRI-CYCLEN [Suspect]
     Indication: ACNE
  2. ORTHO TRI-CYCLEN [Suspect]
     Indication: DRUG THERAPY

REACTIONS (1)
  - COLITIS ULCERATIVE [None]
